FAERS Safety Report 23341571 (Version 1)
Quarter: 2023Q4

REPORT INFORMATION
  Report Type: Spontaneous
  Country: US (occurrence: None)
  Receive Date: 20231226
  Receipt Date: 20231226
  Transmission Date: 20240109
  Serious: Yes (Death)
  Sender: FDA-Public Use
  Company Number: None

PATIENT
  Age: 79 Year
  Sex: Male
  Weight: 60.33 kg

DRUGS (8)
  1. BIKTARVY [Suspect]
     Active Substance: BICTEGRAVIR SODIUM\EMTRICITABINE\TENOFOVIR ALAFENAMIDE FUMARATE
     Indication: HIV infection
     Dosage: OTHER QUANTITY : 50/200/25 MG;?FREQUENCY : DAILY;?
     Route: 048
     Dates: start: 202207, end: 202311
  2. MODAFINIL [Concomitant]
     Active Substance: MODAFINIL
  3. FLUTICASONE [Concomitant]
     Active Substance: FLUTICASONE
  4. AMMONIUM LACTATE [Concomitant]
     Active Substance: AMMONIUM LACTATE
  5. FUROSEMIDE [Concomitant]
     Active Substance: FUROSEMIDE
  6. DOXYCYCLINE [Concomitant]
     Active Substance: DOXYCYCLINE
  7. XARELTO [Concomitant]
     Active Substance: RIVAROXABAN
  8. CLINDAMYCIN [Concomitant]
     Active Substance: CLINDAMYCIN

REACTIONS (1)
  - Death [None]
